FAERS Safety Report 7337962-9 (Version None)
Quarter: 2011Q1

REPORT INFORMATION
  Report Type: 
  Country: None (occurrence: None)
  Receive Date: 20110224
  Receipt Date: 20101201
  Transmission Date: 20110831
  Serious: Yes (Hospitalization)
  Sender: FDA-Public Use
  Company Number: KR-004236

PATIENT
  Sex: Male
  Weight: 67 kg

DRUGS (8)
  1. ASPIRIN [Concomitant]
  2. FUROSEMIDE [Concomitant]
  3. AMLODIPINE MALEATE [Concomitant]
  4. ATORVASTATIN CALCIUM [Concomitant]
  5. DEGARELIX (DEGARELIX) (240 MG, 80 MG) [Suspect]
     Indication: PROSTATE CANCER
     Dosage: (240 MG TOTAL SUBCUTANEOUS), (80 MG 1X/MONTH SUBCUTANEOUS)
     Route: 058
     Dates: start: 20101025
  6. DEGARELIX (DEGARELIX) (240 MG, 80 MG) [Suspect]
     Indication: PROSTATE CANCER
     Dosage: (240 MG TOTAL SUBCUTANEOUS), (80 MG 1X/MONTH SUBCUTANEOUS)
     Route: 058
     Dates: start: 20100927, end: 20100927
  7. CARVEDILOL [Concomitant]
  8. ZOLPIDEM [Concomitant]

REACTIONS (4)
  - DIABETES MELLITUS INADEQUATE CONTROL [None]
  - BLOOD CREATININE INCREASED [None]
  - BLOOD UREA INCREASED [None]
  - UPPER RESPIRATORY TRACT INFECTION [None]
